FAERS Safety Report 8025756-0 (Version None)
Quarter: 2012Q1

REPORT INFORMATION
  Report Type: 
  Country: None (occurrence: None)
  Receive Date: 20120105
  Receipt Date: 20110105
  Transmission Date: 20120608
  Serious: No
  Sender: FDA-Public Use
  Company Number: US-ABBOTT-11P-163-0695751-00

PATIENT
  Sex: Female
  Weight: 68.1 kg

DRUGS (5)
  1. CLONIDINE [Concomitant]
     Route: 048
     Dates: start: 20101201
  2. VERAPAMIL [Concomitant]
     Indication: HYPERTENSION
     Dosage: DOSE DOUBLED
     Dates: start: 20101201
  3. CLONIDINE [Concomitant]
     Indication: HYPERTENSION
     Route: 048
     Dates: end: 20101201
  4. VERAPAMIL [Concomitant]
     Dosage: DOSE UNKNOWN
     Dates: end: 20101201
  5. SYNTHROID [Suspect]
     Indication: HYPOTHYROIDISM
     Route: 048
     Dates: start: 20101001

REACTIONS (1)
  - HYPERTENSION [None]
